FAERS Safety Report 11889162 (Version 3)
Quarter: 2016Q1

REPORT INFORMATION
  Report Type: Spontaneous
  Country: US (occurrence: US)
  Receive Date: 20160105
  Receipt Date: 20160308
  Transmission Date: 20160526
  Serious: Yes (Death, Hospitalization)
  Sender: FDA-Public Use
  Company Number: US-PFIZER INC-2015477673

PATIENT
  Age: 46 Year
  Sex: Male

DRUGS (1)
  1. RAPAMUNE [Suspect]
     Active Substance: SIROLIMUS
     Indication: SOFT TISSUE SARCOMA
     Dosage: UNK
     Dates: start: 201511

REACTIONS (2)
  - Multiple organ dysfunction syndrome [Fatal]
  - Product use issue [Unknown]

NARRATIVE: CASE EVENT DATE: 201511
